FAERS Safety Report 13138680 (Version 1)
Quarter: 2017Q1

REPORT INFORMATION
  Report Type: Spontaneous
  Country: US (occurrence: US)
  Receive Date: 20170123
  Receipt Date: 20170123
  Transmission Date: 20170428
  Serious: No
  Sender: FDA-Public Use
  Company Number: US-UNITED THERAPEUTICS-UNT-2016-012697

PATIENT
  Age: 63 Year
  Sex: Male
  Weight: 59.41 kg

DRUGS (4)
  1. CALCIUM ACETATE. [Suspect]
     Active Substance: CALCIUM ACETATE
     Indication: PRODUCT USED FOR UNKNOWN INDICATION
  2. COUMADIN [Concomitant]
     Active Substance: WARFARIN SODIUM
     Indication: PRODUCT USED FOR UNKNOWN INDICATION
  3. SILDENAFIL. [Concomitant]
     Active Substance: SILDENAFIL
     Indication: PRODUCT USED FOR UNKNOWN INDICATION
  4. REMODULIN [Suspect]
     Active Substance: TREPROSTINIL
     Indication: PULMONARY ARTERIAL HYPERTENSION
     Dosage: 0.033 ?G/KG, CONTINUING
     Route: 058
     Dates: start: 20160513

REACTIONS (6)
  - Infusion site reaction [Unknown]
  - Device issue [Unknown]
  - Infusion site scar [Unknown]
  - Weight decreased [Unknown]
  - Rash [Unknown]
  - Scar [Unknown]

NARRATIVE: CASE EVENT DATE: 201608
